FAERS Safety Report 4982315-1 (Version None)
Quarter: 2006Q2

REPORT INFORMATION
  Report Type: 
  Country: None (occurrence: None)
  Receive Date: 20060425
  Receipt Date: 20060323
  Transmission Date: 20061013
  Serious: Yes (Hospitalization)
  Sender: FDA-Public Use
  Company Number: 2006AP01454

PATIENT
  Age: 28576 Day
  Sex: Male
  Weight: 57 kg

DRUGS (4)
  1. IRESSA [Suspect]
     Indication: NON-SMALL CELL LUNG CANCER
     Route: 048
     Dates: start: 20060120, end: 20060322
  2. IRESSA [Suspect]
     Indication: LUNG ADENOCARCINOMA
     Route: 048
     Dates: start: 20060120, end: 20060322
  3. IRESSA [Suspect]
     Route: 048
     Dates: start: 20060413, end: 20060417
  4. IRESSA [Suspect]
     Route: 048
     Dates: start: 20060413, end: 20060417

REACTIONS (11)
  - ATELECTASIS [None]
  - COLLAPSE OF LUNG [None]
  - DEHYDRATION [None]
  - DISEASE PROGRESSION [None]
  - LUNG NEOPLASM [None]
  - ORAL INTAKE REDUCED [None]
  - PLEURAL EFFUSION [None]
  - PNEUMONIA [None]
  - RENAL IMPAIRMENT [None]
  - SHIFT TO THE LEFT [None]
  - URINE OUTPUT DECREASED [None]
